FAERS Safety Report 10298383 (Version 1)
Quarter: 2014Q3

REPORT INFORMATION
  Report Type: Report from Study
  Country: US (occurrence: US)
  Receive Date: 20140711
  Receipt Date: 20140711
  Transmission Date: 20150326
  Serious: Yes (Hospitalization)
  Sender: FDA-Public Use
  Company Number: US-TEVA-489695USA

PATIENT
  Age: 8 Month
  Sex: Male
  Weight: 7.78 kg

DRUGS (8)
  1. VINCRISTINE [Suspect]
     Active Substance: VINCRISTINE
     Route: 042
     Dates: start: 20140401
  2. DEXAMETHASONE. [Suspect]
     Active Substance: DEXAMETHASONE
     Dates: start: 20140401
  3. CYTARABINE. [Suspect]
     Active Substance: CYTARABINE
     Route: 042
     Dates: start: 20140401
  4. LESTAURTINIB [Suspect]
     Active Substance: LESTAURTINIB
     Dates: start: 20140401
  5. DAUNORUBICIN [Suspect]
     Active Substance: DAUNORUBICIN
     Route: 042
     Dates: start: 20140401
  6. CYCLOPHOSPHAMIDE. [Suspect]
     Active Substance: CYCLOPHOSPHAMIDE
     Route: 042
     Dates: start: 20140401
  7. PEG-L-ASPARAGINASE [Suspect]
     Active Substance: PEGASPARGASE
     Route: 030
     Dates: start: 20140401
  8. METHOTREXATE [Suspect]
     Active Substance: METHOTREXATE
     Route: 037
     Dates: start: 20140401

REACTIONS (1)
  - Febrile neutropenia [Recovering/Resolving]

NARRATIVE: CASE EVENT DATE: 20140627
